FAERS Safety Report 9129602 (Version 1)
Quarter: 2013Q1

REPORT INFORMATION
  Report Type: Spontaneous
  Country: BR (occurrence: BR)
  Receive Date: 20130125
  Receipt Date: 20130125
  Transmission Date: 20140127
  Serious: Yes (Other)
  Sender: FDA-Public Use
  Company Number: BR-PFIZER INC-2013026244

PATIENT
  Age: 86 Year
  Sex: Female

DRUGS (6)
  1. XALATAN [Suspect]
     Indication: GLAUCOMA
     Dosage: 3 UG (1 DROP EACH EYE),  1X/DAY
     Route: 047
     Dates: start: 2003
  2. XALATAN [Suspect]
     Indication: CATARACT
     Dosage: 3 UG (1 DROP EACH EYE),  2X/DAY
     Route: 047
  3. ALPHAGAN [Concomitant]
     Dosage: UNK
     Dates: start: 2003
  4. COSOPT [Concomitant]
     Dosage: UNK
     Dates: start: 2008
  5. SPLENDIL [Concomitant]
     Dosage: UNK
  6. CENTRUM A TO ZINC [Concomitant]
     Dosage: UNK

REACTIONS (7)
  - Glaucoma [Unknown]
  - Glaucoma [Unknown]
  - Cataract [Unknown]
  - Cataract [Unknown]
  - Hypertension [Not Recovered/Not Resolved]
  - Intraocular pressure increased [Unknown]
  - Off label use [Not Recovered/Not Resolved]
